FAERS Safety Report 5833781-0 (Version None)
Quarter: 2008Q3

REPORT INFORMATION
  Report Type: 
  Country: None (occurrence: None)
  Receive Date: 20080805
  Receipt Date: 20080724
  Transmission Date: 20090109
  Serious: Yes (Disabling, Other)
  Sender: FDA-Public Use
  Company Number: HQWYE218510FEB05

PATIENT
  Sex: Male

DRUGS (10)
  1. CORDARONE [Suspect]
  2. NORVASC [Concomitant]
  3. PROTONIX [Concomitant]
  4. PLAVIX [Concomitant]
  5. ZOCOR [Concomitant]
  6. DEXTROPROPOXYPHENE NAPSILATE/PARACETAMOL [Concomitant]
  7. COUMADIN [Suspect]
  8. NORCO [Concomitant]
  9. TOPROL-XL [Concomitant]
  10. ENALAPRIL MALEATE [Concomitant]

REACTIONS (3)
  - AMAUROSIS FUGAX [None]
  - KERATOPATHY [None]
  - VISUAL ACUITY REDUCED [None]
